FAERS Safety Report 8111783 (Version 3)
Quarter: 2013Q4

REPORT INFORMATION
  Report Type: Spontaneous
  Country: US (occurrence: US)
  Receive Date: 20110829
  Receipt Date: 20131127
  Transmission Date: 20140711
  Serious: Yes (Hospitalization, Other)
  Sender: FDA-Public Use
  Company Number: US-BAYER-2011-075328

PATIENT
  Age: 28 Year
  Sex: Female
  Weight: 56.69 kg

DRUGS (2)
  1. YASMIN [Suspect]
     Dosage: UNK
     Dates: start: 2000, end: 2009
  2. OCELLA [Suspect]
     Dosage: UNK
     Dates: start: 2000, end: 2009

REACTIONS (3)
  - Gallbladder injury [None]
  - Biliary dyskinesia [None]
  - Palpitations [None]
